FAERS Safety Report 6129911-6 (Version None)
Quarter: 2009Q1

REPORT INFORMATION
  Report Type: 
  Country: None (occurrence: None)
  Receive Date: 20090324
  Receipt Date: 20090316
  Transmission Date: 20090719
  Serious: Yes (Other)
  Sender: FDA-Public Use
  Company Number: US-JNJFOC-20081200387

PATIENT
  Age: 5 Year
  Sex: Female
  Weight: 39.92 kg

DRUGS (8)
  1. RISPERDAL [Suspect]
     Indication: AGGRESSION
     Route: 048
  2. RISPERDAL [Suspect]
     Indication: BIPOLAR DISORDER
     Dosage: 0.25 MG-0.5 MG A DAY/ORAL
     Route: 048
  3. RISPERDAL [Suspect]
     Indication: AUTISM
     Dosage: 0.25 MG-0.5 MG  2 TIMES A DAY/ORAL
     Route: 048
  4. RISPERDAL [Suspect]
     Dosage: 1-4 TIMES A DAY
     Route: 048
  5. RISPERDAL [Suspect]
     Dosage: .5 MG 1-4 TIMES A A DAY
     Route: 048
  6. INVEGA [Suspect]
     Indication: AGGRESSION
     Route: 048
  7. RISPERIDONE [Suspect]
     Indication: AUTISM
     Route: 065
  8. RISPERIDONE [Suspect]
     Indication: AGGRESSION
     Route: 065

REACTIONS (7)
  - ABNORMAL BEHAVIOUR [None]
  - AGGRESSION [None]
  - ANXIETY [None]
  - FEAR OF ANIMALS [None]
  - HEAD BANGING [None]
  - SELF INJURIOUS BEHAVIOUR [None]
  - THERAPEUTIC RESPONSE DELAYED [None]
